FAERS Safety Report 19246172 (Version 1)
Quarter: 2021Q2

REPORT INFORMATION
  Report Type: Spontaneous
  Country: US (occurrence: US)
  Receive Date: 20210511
  Receipt Date: 20210511
  Transmission Date: 20210717
  Serious: No
  Sender: FDA-Public Use
  Company Number: None

PATIENT
  Age: 58 Year
  Sex: Female
  Weight: 106.65 kg

DRUGS (9)
  1. ESTRODIAL [Concomitant]
     Active Substance: ESTRADIOL
  2. VITAMIN B COMPLEX VITAMIN [Concomitant]
  3. COMPLETE MULTIVITAMIN 50+ [Concomitant]
  4. NATROL COLLAGEN SKIN RENEWAL [Concomitant]
  5. VITAMIN D3 [Concomitant]
     Active Substance: CHOLECALCIFEROL
  6. NP THYROID [Suspect]
     Active Substance: LEVOTHYROXINE\LIOTHYRONINE
     Indication: HYPOTHYROIDISM
     Dosage: ?          QUANTITY:1 TABLET(S);?
     Route: 048
     Dates: start: 20210202, end: 20210507
  7. HEALTH + BEAUTY HAIR, SKIN + NAILS VITAMIN [Concomitant]
  8. PROGESTERONE. [Concomitant]
     Active Substance: PROGESTERONE
  9. HYALURONIC ACID [Concomitant]
     Active Substance: HYALURONIC ACID

REACTIONS (4)
  - Constipation [None]
  - Weight increased [None]
  - Fatigue [None]
  - Feeling cold [None]

NARRATIVE: CASE EVENT DATE: 20210205
